FAERS Safety Report 14626608 (Version 1)
Quarter: 2018Q1

REPORT INFORMATION
  Report Type: Spontaneous
  Country: US (occurrence: US)
  Receive Date: 20180310
  Receipt Date: 20180310
  Transmission Date: 20180509
  Serious: Yes (Hospitalization)
  Sender: FDA-Public Use
  Company Number: None

PATIENT
  Age: 56 Year
  Sex: Male

DRUGS (3)
  1. WARFARIN [Suspect]
     Active Substance: WARFARIN
     Indication: THROMBOSIS
     Dates: start: 20171016, end: 20180203
  2. ENOXAPARIN [Suspect]
     Active Substance: ENOXAPARIN
     Indication: VENTRICULAR ASSIST DEVICE INSERTION
     Route: 058
     Dates: start: 20180124, end: 20180203
  3. WARFARIN [Suspect]
     Active Substance: WARFARIN
     Indication: ATRIAL FIBRILLATION
     Dates: start: 20171016, end: 20180203

REACTIONS (2)
  - Haemorrhagic stroke [None]
  - Haemorrhage intracranial [None]

NARRATIVE: CASE EVENT DATE: 20180203
